FAERS Safety Report 19412630 (Version 2)
Quarter: 2021Q4

REPORT INFORMATION
  Report Type: Other
  Country: JP (occurrence: JP)
  Receive Date: 20210614
  Receipt Date: 20211007
  Transmission Date: 20220303
  Serious: Yes (Other)
  Sender: FDA-Public Use
  Company Number: JP-CHUGAI-A2020027102ROCHE

PATIENT
  Age: 60 Year
  Sex: Female
  Weight: 53 kg

DRUGS (5)
  1. ENTRECTINIB [Suspect]
     Active Substance: ENTRECTINIB
     Indication: Non-small cell lung cancer
     Route: 048
     Dates: start: 20200511, end: 20200617
  2. ENTRECTINIB [Suspect]
     Active Substance: ENTRECTINIB
     Dosage: UNKNOWN DOSAGE WITH REDUCTION.
     Route: 048
     Dates: start: 2020, end: 2020
  3. ENTRECTINIB [Suspect]
     Active Substance: ENTRECTINIB
     Route: 048
     Dates: start: 20200704, end: 20201218
  4. ENTRECTINIB [Suspect]
     Active Substance: ENTRECTINIB
     Route: 048
     Dates: start: 20101226, end: 20210401
  5. ENTRECTINIB [Suspect]
     Active Substance: ENTRECTINIB
     Route: 048
     Dates: start: 20210402

REACTIONS (7)
  - Renal impairment [Recovered/Resolved]
  - Blood creatine phosphokinase increased [Recovered/Resolved]
  - Periorbital oedema [Recovered/Resolved]
  - Oedema peripheral [Recovered/Resolved]
  - Dyspnoea [Recovered/Resolved]
  - Dizziness [Recovered/Resolved]
  - Dyslalia [Recovered/Resolved]

NARRATIVE: CASE EVENT DATE: 20200101
